FAERS Safety Report 4865424-7 (Version None)
Quarter: 2005Q4

REPORT INFORMATION
  Report Type: 
  Country: None (occurrence: None)
  Receive Date: 20051221
  Receipt Date: 20051221
  Transmission Date: 20060501
  Serious: Yes (Hospitalization)
  Sender: FDA-Public Use
  Company Number: None

PATIENT
  Age: 36 Year
  Sex: Female

DRUGS (3)
  1. DILANTIN [Suspect]
     Indication: CONVULSION
     Dosage: 500 MG DAILY
  2. PHENOBARBITAL [Suspect]
     Indication: CONVULSION
     Dosage: 60 MG BID
  3. DEPAKOTE [Concomitant]

REACTIONS (2)
  - CONVULSION [None]
  - LETHARGY [None]
